FAERS Safety Report 7259351-8 (Version None)
Quarter: 2011Q1

REPORT INFORMATION
  Report Type: 
  Country: None (occurrence: None)
  Receive Date: 20110129
  Receipt Date: 20100823
  Transmission Date: 20110831
  Serious: No
  Sender: FDA-Public Use
  Company Number: US-ABBOTT-10P-163-0665808-00

PATIENT
  Age: 47 Year
  Sex: Female

DRUGS (9)
  1. NEXIUM [Concomitant]
     Indication: GASTROOESOPHAGEAL REFLUX DISEASE
  2. AZOR [Concomitant]
     Indication: HYPERTENSION
     Dosage: 10MG/40MG
  3. CELEBREX [Concomitant]
     Indication: RHEUMATOID ARTHRITIS
  4. LEXAPRO [Concomitant]
     Indication: PAIN
  5. ZANAFLEX [Concomitant]
     Indication: MUSCLE RELAXANT THERAPY
  6. HUMIRA [Suspect]
     Indication: RHEUMATOID ARTHRITIS
     Dates: start: 20100801
  7. LEXAPRO [Concomitant]
     Indication: NERVOUSNESS
  8. CRESTOR [Concomitant]
     Indication: BLOOD CHOLESTEROL INCREASED
  9. HYDROCODONE [Concomitant]
     Indication: PAIN

REACTIONS (1)
  - NAUSEA [None]
